FAERS Safety Report 13348080 (Version 2)
Quarter: 2017Q1

REPORT INFORMATION
  Report Type: Report from Study
  Country: IN (occurrence: IN)
  Receive Date: 20170318
  Receipt Date: 20170324
  Transmission Date: 20170428
  Serious: Yes (Death, Other)
  Sender: FDA-Public Use
  Company Number: IN-BRISTOL-MYERS SQUIBB COMPANY-BMS-2017-022428

PATIENT
  Age: 60 Year
  Sex: Male

DRUGS (1)
  1. DASATINIB [Suspect]
     Active Substance: DASATINIB
     Indication: ACUTE LYMPHOCYTIC LEUKAEMIA
     Dosage: 100 MG, ONE TIME DOSE
     Route: 048
     Dates: start: 20170125, end: 20170224

REACTIONS (2)
  - Haemoglobin decreased [Unknown]
  - Malignant neoplasm progression [Fatal]
